FAERS Safety Report 6679070-6 (Version None)
Quarter: 2010Q2

REPORT INFORMATION
  Report Type: 
  Country: None (occurrence: None)
  Receive Date: 20100409
  Receipt Date: 20100331
  Transmission Date: 20101027
  Serious: Yes (Hospitalization, Other)
  Sender: FDA-Public Use
  Company Number: 20108415

PATIENT
  Sex: Female

DRUGS (1)
  1. LIORESAL [Suspect]
     Indication: MUSCLE SPASTICITY
     Dosage: MCG, DAILY, INTRATHECAL-SEE B5
     Route: 037

REACTIONS (10)
  - APNOEIC ATTACK [None]
  - ASTHENIA [None]
  - CARDIOVASCULAR DISORDER [None]
  - COGNITIVE DISORDER [None]
  - DRUG INEFFECTIVE [None]
  - HYPOTONIA [None]
  - MEDICAL DEVICE COMPLICATION [None]
  - OVERDOSE [None]
  - RESPIRATORY DISORDER [None]
  - SOMNOLENCE [None]
